FAERS Safety Report 19510969 (Version 3)
Quarter: 2022Q1

REPORT INFORMATION
  Report Type: Report from Study
  Country: IL (occurrence: IL)
  Receive Date: 20210709
  Receipt Date: 20220331
  Transmission Date: 20220423
  Serious: Yes (Hospitalization, Other)
  Sender: FDA-Public Use
  Company Number: IL-SA-2018SA025144

PATIENT
  Age: 45 Year
  Sex: Female
  Weight: 62 kg

DRUGS (13)
  1. AGALSIDASE BETA [Suspect]
     Active Substance: AGALSIDASE BETA
     Indication: Fabry^s disease
     Dosage: 70 MG, QOW
     Route: 041
     Dates: start: 20180111
  2. ASPIRIN [Concomitant]
     Active Substance: ASPIRIN
     Dosage: UNK
     Route: 065
  3. TOPAMAX [Concomitant]
     Active Substance: TOPIRAMATE
     Dosage: 50 MG
     Route: 065
  4. TOPIRAMATE [Concomitant]
     Active Substance: TOPIRAMATE
  5. LORAZEPAM [Concomitant]
     Active Substance: LORAZEPAM
  6. AMITRIPTYLINE HYDROCHLORIDE [Concomitant]
     Active Substance: AMITRIPTYLINE HYDROCHLORIDE
     Dosage: 10 MG
     Route: 065
  7. AMITRIPTYLINE [Concomitant]
     Active Substance: AMITRIPTYLINE
  8. NEXIUM I.V. [Concomitant]
     Active Substance: ESOMEPRAZOLE SODIUM
     Dosage: 40 MG
     Route: 065
  9. ASPIRIN [Concomitant]
     Active Substance: ASPIRIN
     Dosage: 100 MG
     Route: 065
  10. ELATROL [Concomitant]
     Dosage: 25 MG
     Route: 065
  11. OMEPRAZOLE [Concomitant]
     Active Substance: OMEPRAZOLE
  12. DOXYLIN [DOXYCYCLINE] [Concomitant]
  13. ASPIRIN [Concomitant]
     Active Substance: ASPIRIN
     Dosage: 100 MG
     Route: 065

REACTIONS (56)
  - Uterine infection [Unknown]
  - Loss of consciousness [Recovered/Resolved]
  - Dyspnoea [Recovered/Resolved]
  - Feeling cold [Recovered/Resolved]
  - Hemiplegia [Recovered/Resolved]
  - Syncope [Unknown]
  - Syncope [Recovered/Resolved]
  - Diarrhoea [Unknown]
  - Abdominal pain upper [Unknown]
  - Nausea [Recovering/Resolving]
  - Vomiting [Recovering/Resolving]
  - Diarrhoea [Recovered/Resolved]
  - Abdominal pain [Recovered/Resolved]
  - Vision blurred [Recovering/Resolving]
  - Feeling abnormal [Unknown]
  - Endometrial atrophy [Unknown]
  - Nervousness [Unknown]
  - Vaginal infection [Unknown]
  - Urinary tract infection [Unknown]
  - Eye infection [Unknown]
  - Bone pain [Not Recovered/Not Resolved]
  - Uterine inflammation [Unknown]
  - Headache [Not Recovered/Not Resolved]
  - Dizziness [Not Recovered/Not Resolved]
  - Feeling hot [Not Recovered/Not Resolved]
  - Nausea [Not Recovered/Not Resolved]
  - Abdominal pain [Recovered/Resolved]
  - Malaise [Unknown]
  - Rhinorrhoea [Recovering/Resolving]
  - Pyrexia [Recovered/Resolved]
  - Paraesthesia [Not Recovered/Not Resolved]
  - Facial paresis [Recovering/Resolving]
  - Insomnia [Not Recovered/Not Resolved]
  - Gait disturbance [Not Recovered/Not Resolved]
  - Groin pain [Not Recovered/Not Resolved]
  - Neck pain [Not Recovered/Not Resolved]
  - Dyspepsia [Recovering/Resolving]
  - Constipation [Not Recovered/Not Resolved]
  - Diarrhoea [Recovered/Resolved]
  - Fall [Unknown]
  - Hypersensitivity [Recovered/Resolved]
  - Swelling [Recovered/Resolved]
  - Vomiting [Recovered/Resolved]
  - Pruritus [Recovered/Resolved]
  - Dizziness [Recovered/Resolved]
  - Paraesthesia oral [Recovered/Resolved]
  - Weight decreased [Unknown]
  - Leukocytosis [Unknown]
  - Ovarian cyst [Unknown]
  - Viral infection [Unknown]
  - Fatigue [Not Recovered/Not Resolved]
  - Arthralgia [Not Recovered/Not Resolved]
  - Abdominal pain upper [Recovered/Resolved]
  - Pain in extremity [Not Recovered/Not Resolved]
  - Abdominal pain upper [Not Recovered/Not Resolved]
  - Asthenia [Not Recovered/Not Resolved]

NARRATIVE: CASE EVENT DATE: 20180101
